FAERS Safety Report 13642748 (Version 1)
Quarter: 2017Q2

REPORT INFORMATION
  Report Type: Spontaneous
  Country: FR (occurrence: FR)
  Receive Date: 20170612
  Receipt Date: 20170612
  Transmission Date: 20170830
  Serious: Yes (Other)
  Sender: FDA-Public Use
  Company Number: FR-BAYER-2017-105732

PATIENT
  Age: 39 Year
  Sex: Female

DRUGS (1)
  1. MIRENA [Suspect]
     Active Substance: LEVONORGESTREL
     Indication: CONTRACEPTION
     Dosage: 20 MCG/24HR, CONT
     Route: 015
     Dates: start: 20160829, end: 20170307

REACTIONS (12)
  - Hypertrichosis [None]
  - Alopecia [None]
  - Muscle spasms [None]
  - Depression [None]
  - Fatigue [None]
  - Acne [None]
  - Loss of libido [None]
  - Seborrhoea [None]
  - Weight increased [None]
  - Visual acuity reduced [None]
  - Irritability [None]
  - Insomnia [None]

NARRATIVE: CASE EVENT DATE: 20161102
